FAERS Safety Report 25651743 (Version 1)
Quarter: 2025Q3

REPORT INFORMATION
  Report Type: Spontaneous
  Country: US (occurrence: US)
  Receive Date: 20250806
  Receipt Date: 20250806
  Transmission Date: 20251020
  Serious: No
  Sender: EVOKE PHARMA
  Company Number: US-EVOKE PHARMA, INC.-2025EVO000031

PATIENT

DRUGS (1)
  1. GIMOTI [Suspect]
     Active Substance: METOCLOPRAMIDE HYDROCHLORIDE
     Indication: Impaired gastric emptying
     Dosage: 1 PUFFS, QID
     Route: 045
     Dates: start: 20241230, end: 20250429

REACTIONS (5)
  - Sunburn [Unknown]
  - Back pain [Unknown]
  - Neck pain [Unknown]
  - Condition aggravated [Unknown]
  - Blister [Unknown]

NARRATIVE: CASE EVENT DATE: 20250430
